FAERS Safety Report 9842225 (Version 1)
Quarter: 2014Q1

REPORT INFORMATION
  Report Type: Spontaneous
  Country: US (occurrence: US)
  Receive Date: 20140124
  Receipt Date: 20140124
  Transmission Date: 20141002
  Serious: Yes (Other)
  Sender: FDA-Public Use
  Company Number: US-TEVA-457900USA

PATIENT
  Age: 9 Year
  Sex: Female

DRUGS (13)
  1. METHOTREXATE [Suspect]
     Indication: OSTEOSARCOMA METASTATIC
     Dosage: 12 G/M2 OVER 4H INFUSION (1ST COURSE); THEN DECREASED TO 8 G/M2
     Route: 050
  2. METHOTREXATE [Suspect]
     Indication: OSTEOSARCOMA METASTATIC
     Dosage: 8 G/M2 INFUSION (5213 MG/M2 ADMINISTERED IN 2ND COURSE)
     Route: 050
  3. BEVACIZUMAB [Concomitant]
     Indication: OSTEOSARCOMA METASTATIC
     Route: 065
  4. DOXORUBICIN [Concomitant]
     Indication: OSTEOSARCOMA METASTATIC
     Route: 065
  5. IFOSFAMIDE [Concomitant]
     Indication: OSTEOSARCOMA METASTATIC
     Route: 065
  6. ETOPOSIDE [Concomitant]
     Indication: OSTEOSARCOMA METASTATIC
     Route: 065
  7. GLUCARPIDASE [Concomitant]
     Indication: RENAL FAILURE ACUTE
     Route: 065
  8. DIPHENHYDRAMINE [Concomitant]
     Indication: HYPERSENSITIVITY
     Route: 065
  9. DIPHENHYDRAMINE [Concomitant]
     Dosage: 2 DOSES OF 1 MG/KG
     Route: 042
  10. DEXAMETHASONE [Concomitant]
     Indication: PREMEDICATION
     Route: 048
  11. HYDROCORTISONE [Concomitant]
     Dosage: 2 DOSES OF 50 MG/M2
     Route: 042
  12. RANITIDINE [Concomitant]
     Dosage: 1 MG/KG
     Route: 042
  13. FOLINIC ACID [Concomitant]
     Dosage: FOR 6 DOSES
     Route: 048

REACTIONS (3)
  - Renal failure acute [Unknown]
  - Hypersensitivity [Recovering/Resolving]
  - Mucosal inflammation [Recovered/Resolved]
